FAERS Safety Report 9706649 (Version 1)
Quarter: 2013Q4

REPORT INFORMATION
  Report Type: Spontaneous
  Country: FR (occurrence: FR)
  Receive Date: 20131125
  Receipt Date: 20131125
  Transmission Date: 20140711
  Serious: Yes (Hospitalization)
  Sender: FDA-Public Use
  Company Number: FR-ASTRAZENECA-2013SE85323

PATIENT
  Sex: Female

DRUGS (12)
  1. INEXIUM [Suspect]
     Route: 048
  2. PLAQUENIL [Interacting]
     Route: 065
  3. SEROPRAM [Interacting]
     Route: 065
  4. CONTRAMAL [Interacting]
     Route: 048
  5. PRADAXA [Concomitant]
  6. CORTANCYL [Concomitant]
  7. SPECIAFOLDINE [Concomitant]
  8. KEPPRA [Concomitant]
  9. LAMICTAL [Concomitant]
  10. LUTERAN [Concomitant]
  11. DAFALGAN [Concomitant]
  12. LEXOMIL [Concomitant]

REACTIONS (7)
  - Drug interaction [Not Recovered/Not Resolved]
  - Weight decreased [Not Recovered/Not Resolved]
  - Calculus bladder [Unknown]
  - Decreased appetite [Unknown]
  - Diarrhoea [Not Recovered/Not Resolved]
  - Abdominal pain [Unknown]
  - Nausea [Unknown]
